FAERS Safety Report 15275778 (Version 1)
Quarter: 2018Q3

REPORT INFORMATION
  Report Type: Spontaneous
  Country: US (occurrence: US)
  Receive Date: 20180727
  Receipt Date: 20180727
  Transmission Date: 20181010
  Serious: Yes (Hospitalization)
  Sender: FDA-Public Use
  Company Number: None

PATIENT
  Age: 64 Year
  Sex: Male

DRUGS (11)
  1. INSULIN ASPART [Concomitant]
     Active Substance: INSULIN ASPART
  2. ACYCLOVIR. [Concomitant]
     Active Substance: ACYCLOVIR
  3. FINASTERIDE. [Concomitant]
     Active Substance: FINASTERIDE
  4. TACROLIMUS. [Suspect]
     Active Substance: TACROLIMUS
     Indication: GRAFT VERSUS HOST DISEASE
     Route: 048
     Dates: start: 20171016, end: 20180604
  5. INSULIN GLARGINE [Concomitant]
     Active Substance: INSULIN GLARGINE
  6. ISAVUCONAZONIUM [Concomitant]
     Active Substance: ISAVUCONAZONIUM
  7. OMEPRAZOLE. [Concomitant]
     Active Substance: OMEPRAZOLE
  8. DAPSONE. [Concomitant]
     Active Substance: DAPSONE
  9. PREDNISONE. [Concomitant]
     Active Substance: PREDNISONE
  10. ATORVASTATIN [Concomitant]
     Active Substance: ATORVASTATIN
  11. LOPERAMIDE [Concomitant]
     Active Substance: LOPERAMIDE

REACTIONS (7)
  - Febrile neutropenia [None]
  - Pneumonia [None]
  - Ischaemic stroke [None]
  - Hyperbilirubinaemia [None]
  - Acute kidney injury [None]
  - Thrombocytopenia [None]
  - Haemolysis [None]

NARRATIVE: CASE EVENT DATE: 20180602
